FAERS Safety Report 6338716-2 (Version None)
Quarter: 2009Q3

REPORT INFORMATION
  Report Type: 
  Country: None (occurrence: None)
  Receive Date: 20090903
  Receipt Date: 20090213
  Transmission Date: 20100115
  Serious: No
  Sender: FDA-Public Use
  Company Number: A0768675A

PATIENT
  Age: 35 Year
  Sex: Female

DRUGS (2)
  1. RELENZA [Suspect]
     Indication: PROPHYLAXIS
     Route: 055
     Dates: start: 20090101, end: 20090101
  2. NO CONCURRENT MEDICATION [Concomitant]

REACTIONS (3)
  - ERYTHEMA [None]
  - PHARYNGEAL OEDEMA [None]
  - URTICARIA [None]
